FAERS Safety Report 13630800 (Version 1)
Quarter: 2017Q2

REPORT INFORMATION
  Report Type: Spontaneous
  Country: CH (occurrence: CH)
  Receive Date: 20170608
  Receipt Date: 20170608
  Transmission Date: 20170830
  Serious: Yes (Hospitalization)
  Sender: FDA-Public Use
  Company Number: CH-009507513-1706CHE000332

PATIENT
  Age: 69 Year
  Sex: Male

DRUGS (5)
  1. XELODA [Suspect]
     Active Substance: CAPECITABINE
     Dosage: 4 G, UNK
     Route: 048
     Dates: start: 20170323
  2. DEPAKINE [Suspect]
     Active Substance: VALPROATE SODIUM
     Dosage: 500 MG, TID
     Route: 048
  3. DIPIPERON [Suspect]
     Active Substance: PIPAMPERONE
     Dosage: 80 MG, UNK
     Route: 048
  4. REMERON [Suspect]
     Active Substance: MIRTAZAPINE
     Dosage: 30 MG, QD
     Route: 048
  5. TEGRETOL [Suspect]
     Active Substance: CARBAMAZEPINE
     Dosage: 400 MG, BID
     Route: 048

REACTIONS (4)
  - Gait disturbance [Recovered/Resolved]
  - Asthenia [Recovered/Resolved]
  - Paraesthesia [Recovered/Resolved]
  - Drug interaction [Recovering/Resolving]

NARRATIVE: CASE EVENT DATE: 20170507
